FAERS Safety Report 16804279 (Version 1)
Quarter: 2019Q3

REPORT INFORMATION
  Report Type: Report from Study
  Country: RO (occurrence: RO)
  Receive Date: 20190913
  Receipt Date: 20190913
  Transmission Date: 20191005
  Serious: Yes (Hospitalization)
  Sender: FDA-Public Use
  Company Number: RO-GILEAD-2019-0428081

PATIENT
  Age: 68 Year
  Sex: Female

DRUGS (5)
  1. PHYSIOLOGICAL SALINE SOLUTION [Concomitant]
     Active Substance: SODIUM CHLORIDE
  2. ALBUMIN [Concomitant]
     Active Substance: ALBUMIN HUMAN
  3. TACROLIMUS. [Concomitant]
     Active Substance: TACROLIMUS
  4. LEDIPASVIR/SOFOSBUVIR [Suspect]
     Active Substance: LEDIPASVIR\SOFOSBUVIR
     Indication: CHRONIC HEPATITIS C
     Dosage: 1 DOSAGE FORM, QD
     Route: 048
     Dates: start: 20190821
  5. SERASEPT 1 [Concomitant]

REACTIONS (4)
  - Decreased appetite [Recovered/Resolved]
  - Blood pressure decreased [Recovered/Resolved]
  - Asthenia [Recovered/Resolved]
  - Weight decreased [Recovered/Resolved]

NARRATIVE: CASE EVENT DATE: 201908
